FAERS Safety Report 16156949 (Version 1)
Quarter: 2019Q2

REPORT INFORMATION
  Report Type: Spontaneous
  Country: US (occurrence: US)
  Receive Date: 20190228
  Receipt Date: 20190228
  Transmission Date: 20190711
  Serious: No
  Sender: FDA-Public Use
  Company Number: None

PATIENT
  Age: 59 Year
  Sex: Female

DRUGS (1)
  1. EPOPROSTENOL SOD 1.5MG/VL TEVA PARENTERAL MEDICINES [Suspect]
     Active Substance: EPOPROSTENOL SODIUM
     Indication: PULMONARY ARTERIAL HYPERTENSION
     Dosage: 14NG/KG/MIN CONTINUOUS INTRAVENOUS
     Route: 042
     Dates: start: 20181210

REACTIONS (3)
  - Diarrhoea [None]
  - Pain in jaw [None]
  - Product substitution issue [None]

NARRATIVE: CASE EVENT DATE: 20181211
